FAERS Safety Report 9392322 (Version 1)
Quarter: 2013Q3

REPORT INFORMATION
  Report Type: Spontaneous
  Country: GB (occurrence: GB)
  Receive Date: 20130710
  Receipt Date: 20130710
  Transmission Date: 20140515
  Serious: Yes (Hospitalization)
  Sender: FDA-Public Use
  Company Number: GB-009507513-1307GBR004186

PATIENT
  Sex: Female

DRUGS (6)
  1. INEGY [Suspect]
     Route: 048
  2. ATORVASTATIN [Concomitant]
  3. ATENOLOL [Concomitant]
  4. ASPIRIN [Concomitant]
  5. CLOPIDOGREL [Concomitant]
  6. RAMIPRIL [Concomitant]

REACTIONS (2)
  - Non-cardiac chest pain [Unknown]
  - Drug dose omission [Unknown]
